FAERS Safety Report 16347215 (Version 1)
Quarter: 2019Q2

REPORT INFORMATION
  Report Type: Spontaneous
  Country: US (occurrence: US)
  Receive Date: 20190417
  Receipt Date: 20190417
  Transmission Date: 20190711
  Serious: No
  Sender: FDA-Public Use
  Company Number: None

PATIENT
  Age: 67 Year
  Sex: Female

DRUGS (6)
  1. VENTORIN INHALER [Concomitant]
  2. ATORVASTATIN 20MG [Concomitant]
     Active Substance: ATORVASTATIN
  3. MALPDONE ?? [Concomitant]
  4. LETROZOLE 2.5G [Concomitant]
  5. IBRANCE [Suspect]
     Active Substance: PALBOCICLIB
     Indication: BREAST CANCER
     Route: 048
     Dates: start: 20190218
  6. BREO-ELIPTA [Concomitant]

REACTIONS (4)
  - Haemoglobin decreased [None]
  - White blood cell count decreased [None]
  - Platelet count decreased [None]
  - Haematocrit decreased [None]

NARRATIVE: CASE EVENT DATE: 20190408
